FAERS Safety Report 4923718-0 (Version None)
Quarter: 2006Q1

REPORT INFORMATION
  Report Type: 
  Country: None (occurrence: None)
  Receive Date: 20060224
  Receipt Date: 20060224
  Transmission Date: 20060701
  Serious: Yes (Life-Threatening)
  Sender: FDA-Public Use
  Company Number: None

PATIENT
  Age: 67 Year
  Sex: Male
  Weight: 88.4514 kg

DRUGS (1)
  1. LIPITOR [Suspect]
     Indication: BLOOD CHOLESTEROL INCREASED
     Dosage: 1 DAILY PO
     Route: 048
     Dates: start: 19900915, end: 20060211

REACTIONS (14)
  - ABNORMAL BEHAVIOUR [None]
  - ANOREXIA [None]
  - BACK PAIN [None]
  - BLOOD PRESSURE INCREASED [None]
  - DEPRESSION [None]
  - DYSPNOEA [None]
  - ERYTHEMA [None]
  - IMPAIRED DRIVING ABILITY [None]
  - INSOMNIA [None]
  - JAUNDICE [None]
  - MEMORY IMPAIRMENT [None]
  - SINUS DISORDER [None]
  - SKIN DISCOLOURATION [None]
  - TREMOR [None]
